FAERS Safety Report 24357031 (Version 1)
Quarter: 2024Q3

REPORT INFORMATION
  Report Type: Spontaneous
  Country: US (occurrence: US)
  Receive Date: 20240924
  Receipt Date: 20240924
  Transmission Date: 20241017
  Serious: No
  Sender: CELLTRION
  Company Number: US-CELLTRION INC.-2023US017881

PATIENT

DRUGS (11)
  1. INFLIXIMAB [Suspect]
     Active Substance: INFLIXIMAB
     Indication: Immune-mediated enterocolitis
     Dosage: 5 MG/KG
  2. INFLIXIMAB [Suspect]
     Active Substance: INFLIXIMAB
     Dosage: SECOND DOSE OF INFLIXIMAB
  3. INFLIXIMAB [Suspect]
     Active Substance: INFLIXIMAB
     Dosage: THIRD INFLIXIMAB INFUSION (SIX WEEKS AFTER THE INITIAL DOSE)
  4. VEDOLIZUMAB [Suspect]
     Active Substance: VEDOLIZUMAB
     Indication: Immune-mediated enterocolitis
     Dosage: STANDARD INDUCTION SEQUENCE OF 300 MG INTRAVENOUSLY AT WEEKS 0, TWO, AND SIX AND THEN ASSESSED FOR D
     Route: 042
  5. VEDOLIZUMAB [Suspect]
     Active Substance: VEDOLIZUMAB
     Dosage: AFTER FIVE DOSES OF VEDOLIZUMAB
  6. VEDOLIZUMAB [Suspect]
     Active Substance: VEDOLIZUMAB
     Dosage: THREE-DOSE INDUCTION SEQUENCE
  7. VEDOLIZUMAB [Suspect]
     Active Substance: VEDOLIZUMAB
     Dosage: TWO-DOSE INTENSIFIED MAINTENANCE DOSES
  8. VEDOLIZUMAB [Suspect]
     Active Substance: VEDOLIZUMAB
     Dosage: LOW VEDOLIZUMAB TROUGH OF 5.4 ?G/ML
  9. VEDOLIZUMAB [Suspect]
     Active Substance: VEDOLIZUMAB
     Dosage: A SIXTH DOSE OF VEDOLIZUMAB WAS ADMINISTERED DUE TO MILD SYMPTOMS
  10. VEDOLIZUMAB [Suspect]
     Active Substance: VEDOLIZUMAB
     Dosage: ADDITIONAL DOSE OF VEDOLIZUMAB WAS ADMINISTERED DUE TO ONGOING SYMPTOMS
  11. TOFACITINIB [Suspect]
     Active Substance: TOFACITINIB
     Indication: Immune-mediated enterocolitis
     Dosage: 5 MILLIGRAM, BID

REACTIONS (1)
  - Drug ineffective for unapproved indication [Unknown]
